FAERS Safety Report 9033297 (Version 1)
Quarter: 2013Q1

REPORT INFORMATION
  Report Type: Spontaneous
  Country: SG (occurrence: SG)
  Receive Date: 20130128
  Receipt Date: 20130128
  Transmission Date: 20140127
  Serious: Yes (Other)
  Sender: FDA-Public Use
  Company Number: SG-BAYER-2013-009823

PATIENT
  Age: 64 Year
  Sex: Male

DRUGS (2)
  1. ACETYLSALICYLIC ACID({=100 MG) [Suspect]
     Dosage: UNK
     Route: 048
  2. PARACETAMOL [Suspect]
     Dosage: UNK

REACTIONS (1)
  - Angioedema [Unknown]
